FAERS Safety Report 4425000-7 (Version None)
Quarter: 2004Q3

REPORT INFORMATION
  Report Type: 
  Country: None (occurrence: None)
  Receive Date: 20040811
  Receipt Date: 20040811
  Transmission Date: 20050211
  Serious: Yes (Life-Threatening)
  Sender: FDA-Public Use
  Company Number: None

PATIENT
  Age: 59 Year
  Sex: Female
  Weight: 69.4003 kg

DRUGS (9)
  1. ERBITUX 100 MG IMCLONE/BMS [Suspect]
     Indication: COLORECTAL CANCER METASTATIC
     Dosage: 690 MG WEEKLY IV
     Route: 042
     Dates: start: 20040810, end: 20040810
  2. ATENOLOL [Concomitant]
  3. CLONIDINE HCL [Concomitant]
  4. FUROSEMIDE [Concomitant]
  5. POTASSIUM SUPPLEMENT [Concomitant]
  6. ENALAPRIL MALEATE [Concomitant]
  7. FLUOROURACIL [Concomitant]
  8. LEUCOVORIN [Concomitant]
  9. AVASTIN [Concomitant]

REACTIONS (7)
  - DYSPNOEA [None]
  - EAR DISORDER [None]
  - ERYTHEMA [None]
  - FEELING ABNORMAL [None]
  - HEARING IMPAIRED [None]
  - HYPERSENSITIVITY [None]
  - PARAESTHESIA [None]
